FAERS Safety Report 9520753 (Version 1)
Quarter: 2013Q1

REPORT INFORMATION
  Report Type: Spontaneous
  Country: US (occurrence: None)
  Receive Date: 20130305
  Receipt Date: 20130305
  Transmission Date: 20140127
  Serious: Yes (Disabling, Other)
  Sender: FDA-Public Use
  Company Number: 163-21880-12032621

PATIENT
  Age: 88 Year
  Sex: Female

DRUGS (10)
  1. REVLIMID [Suspect]
     Indication: PLASMA CELL MYELOMA
     Dosage: 25 MG, 1 IN 1 D, PO
     Route: 048
     Dates: start: 20120117
  2. ACYCLOVIR (ACICLOVIR) (UNKNOWN) [Concomitant]
  3. ASA (ACETYLSALICYLIC ACID) (UNKNOWN) [Concomitant]
  4. CALCIUM 500 + VITAMIN D (CALCIUM D3 ^STADA^) (UNKNOWN) [Concomitant]
  5. DILTIAZEM HCL (DILTIAZEM HYDROCHLORIDE) (UNKNOWN) [Concomitant]
  6. HYDROCHLOROTHIAZIDE (HYDROCHLOROTHIAZIDE) (UNKNOWN)? [Concomitant]
  7. SULFAMETHOXAZOLE (SULFAMETHOXAZOLE) (UNKNOWN)? [Concomitant]
  8. VITAMIN C [Concomitant]
  9. BACTRIM DS (BACTRIM) (UNKNOWN) [Concomitant]
  10. DEXAMETHASONE (DEXAMETHASONE) (UNKNOWN) [Concomitant]

REACTIONS (5)
  - Asthenia [None]
  - Weight decreased [None]
  - Activities of daily living impaired [None]
  - Fatigue [None]
  - Decreased appetite [None]
